FAERS Safety Report 5268824-9 (Version None)
Quarter: 2007Q1

REPORT INFORMATION
  Report Type: 
  Country: None (occurrence: None)
  Receive Date: 20070314
  Receipt Date: 20070228
  Transmission Date: 20070707
  Serious: Yes (Hospitalization)
  Sender: FDA-Public Use
  Company Number: 070011

PATIENT
  Age: 59 Year
  Sex: Female
  Weight: 81.6475 kg

DRUGS (1)
  1. HALFLYTELY [Suspect]
     Indication: COLONOSCOPY
     Dosage: 20MG/2L, 1X, PO
     Route: 048
     Dates: start: 20070117

REACTIONS (11)
  - ARTHRALGIA [None]
  - BLOOD ELECTROLYTES ABNORMAL [None]
  - BRAIN NEOPLASM [None]
  - DISCOMFORT [None]
  - DIZZINESS [None]
  - FACE INJURY [None]
  - HAEMORRHAGE [None]
  - LOSS OF CONSCIOUSNESS [None]
  - MUSCLE SPASMS [None]
  - PAIN IN EXTREMITY [None]
  - SYNCOPE [None]
